FAERS Safety Report 9310914 (Version 1)
Quarter: 2013Q2

REPORT INFORMATION
  Report Type: Spontaneous
  Country: US (occurrence: None)
  Receive Date: 20130523
  Receipt Date: 20130523
  Transmission Date: 20140414
  Serious: No
  Sender: FDA-Public Use
  Company Number: None

PATIENT
  Sex: Female

DRUGS (1)
  1. TECFIDERA [Suspect]
     Indication: MULTIPLE SCLEROSIS
     Route: 048
     Dates: start: 20130423, end: 20130517

REACTIONS (6)
  - Malaise [None]
  - Pyrexia [None]
  - Vomiting [None]
  - Diarrhoea [None]
  - Drug ineffective [None]
  - Malaise [None]
